FAERS Safety Report 8511166 (Version 2)
Quarter: 2013Q1

REPORT INFORMATION
  Report Type: Spontaneous
  Country: US (occurrence: US)
  Receive Date: 20120413
  Receipt Date: 20130124
  Transmission Date: 20140127
  Serious: No
  Sender: FDA-Public Use
  Company Number: US-ASTRAZENECA-2011SE63494

PATIENT
  Age: 66 Year
  Sex: Male
  Weight: 88.5 kg

DRUGS (4)
  1. NEXIUM [Suspect]
     Indication: GASTROOESOPHAGEAL REFLUX DISEASE
     Route: 048
     Dates: start: 2005
  2. NEXIUM [Suspect]
     Indication: INFLAMMATORY BOWEL DISEASE
     Route: 048
     Dates: start: 2005
  3. LIBRAX [Concomitant]
     Indication: MUSCLE RELAXANT THERAPY
  4. CAREFATE [Concomitant]
     Indication: ABDOMINAL PAIN UPPER

REACTIONS (5)
  - Cough [Unknown]
  - Nasopharyngitis [Unknown]
  - Abdominal pain upper [Recovered/Resolved]
  - Off label use [Unknown]
  - Incorrect drug administration duration [Unknown]
